FAERS Safety Report 17731759 (Version 2)
Quarter: 2020Q2

REPORT INFORMATION
  Report Type: Report from Study
  Country: US (occurrence: US)
  Receive Date: 20200501
  Receipt Date: 20200603
  Transmission Date: 20200714
  Serious: No
  Sender: FDA-Public Use
  Company Number: US-INCYTE CORPORATION-2020IN003871

PATIENT

DRUGS (2)
  1. JAKAFI [Suspect]
     Active Substance: RUXOLITINIB
     Indication: POLYCYTHAEMIA VERA
     Dosage: 5 MILLIGRAM, BID
     Route: 048
     Dates: start: 20190412
  2. JAKAFI [Suspect]
     Active Substance: RUXOLITINIB
     Dosage: 10 MILLIGRAM (TWO 5 MG TABS) QAM, AND 5 MG QPM
     Route: 048
     Dates: start: 20190412

REACTIONS (5)
  - Haematocrit increased [Unknown]
  - Fatigue [Unknown]
  - White blood cell count increased [Unknown]
  - Product dose omission [Unknown]
  - Platelet count increased [Unknown]
